FAERS Safety Report 23870518 (Version 2)
Quarter: 2024Q2

REPORT INFORMATION
  Report Type: Spontaneous
  Country: US (occurrence: US)
  Receive Date: 20240518
  Receipt Date: 20240520
  Transmission Date: 20240717
  Serious: No
  Sender: FDA-Public Use
  Company Number: US-ABBVIE-5765526

PATIENT
  Sex: Female
  Weight: 68.038 kg

DRUGS (3)
  1. REFRESH LACRI-LUBE [Suspect]
     Active Substance: MINERAL OIL\PETROLATUM
     Indication: Dry eye
     Dosage: 3.5 G OINTMENT
     Route: 047
     Dates: start: 202106
  2. REFRESH OPTIVE [Suspect]
     Active Substance: CARBOXYMETHYLCELLULOSE SODIUM\GLYCERIN
     Indication: Dry eye
     Dosage: GEL DROPS?FORM STRENGTH: CMC 10MG/ML;GLYCERIN 9MG/ML
     Route: 047
     Dates: start: 202311
  3. REFRESH P.M. [Suspect]
     Active Substance: MINERAL OIL\PETROLATUM
     Indication: Dry eye
     Dosage: NIGHT TIME?FORM STRENGTH: MINERAL OIL 425MG/ML;WHITE PETROLATUM 573MG/ML
     Route: 047
     Dates: start: 2021

REACTIONS (1)
  - Drug ineffective [Unknown]
